FAERS Safety Report 8207068-5 (Version None)
Quarter: 2012Q1

REPORT INFORMATION
  Report Type: 
  Country: None (occurrence: None)
  Receive Date: 20120312
  Receipt Date: 20120227
  Transmission Date: 20120608
  Serious: Yes (Hospitalization, Congenital Anomaly)
  Sender: FDA-Public Use
  Company Number: E2B_00000165

PATIENT
  Sex: Female
  Weight: 2.85 kg

DRUGS (6)
  1. LAMOTRIGINE [Suspect]
     Indication: DEPRESSION
     Dosage: 200 MG (200 MG),TRANSPLACENTAL
     Route: 064
  2. RISPERIDONE [Suspect]
     Indication: POST-TRAUMATIC STRESS DISORDER
     Dosage: APPROXIMATELY PREGNACY WEEK 25 (6 MG,PER DAY),TRANSPLACENTAL
     Route: 064
     Dates: end: 20100701
  3. LORAZEPAM [Suspect]
     Indication: BORDERLINE PERSONALITY DISORDER
     Dosage: DOSAGE BETWEEN 2.5MG/D AND 8MG/D (8 MG,AS REQUIRED),TRANSPLACENTAL
     Route: 064
     Dates: end: 20100601
  4. VENLAFAXINE HYDROCHLORIDE [Suspect]
     Indication: ANXIETY DISORDER
     Dosage: APPROXIMATELY PREGNANCY WEEK 25 (150 MG,PER DAY),TRANSPLACENTAL
     Route: 064
     Dates: end: 20100701
  5. FOLIC ACID (FOLSAURE) [Concomitant]
  6. TRIMIPRAMINE MALEATE [Suspect]
     Indication: DEPRESSION
     Dosage: APPROXIMATELY PREGNANCY WEEK 34, TRANSPLACENTAL
     Route: 064
     Dates: end: 20100901

REACTIONS (7)
  - CAESAREAN SECTION [None]
  - PARACHUTE MITRAL VALVE [None]
  - ATRIAL SEPTAL DEFECT [None]
  - COARCTATION OF THE AORTA [None]
  - MATERNAL DRUGS AFFECTING FOETUS [None]
  - VENTRICULAR SEPTAL DEFECT [None]
  - PATENT DUCTUS ARTERIOSUS [None]
